FAERS Safety Report 21634149 (Version 2)
Quarter: 2023Q1

REPORT INFORMATION
  Report Type: Spontaneous
  Country: US (occurrence: US)
  Receive Date: 20221123
  Receipt Date: 20230202
  Transmission Date: 20230417
  Serious: Yes (Hospitalization, Other)
  Sender: FDA-Public Use
  Company Number: US-PFIZER INC-202201313905

PATIENT
  Age: 53 Year
  Sex: Male
  Weight: 83.01 kg

DRUGS (11)
  1. PAXLOVID [Suspect]
     Active Substance: NIRMATRELVIR\RITONAVIR
     Indication: COVID-19 treatment
     Dosage: 3 DF, 2X/DAY (TAKE 3 TABLETS BY MOUTH TWICE A DAY FOR 5 DAYS)
     Route: 048
     Dates: start: 20220908
  2. OMEPRAZOLE [Suspect]
     Active Substance: OMEPRAZOLE
     Indication: Blood cholesterol increased
     Dosage: 20 MG, DAILY
  3. OMEPRAZOLE [Suspect]
     Active Substance: OMEPRAZOLE
     Indication: Hypertension
  4. OMEPRAZOLE [Suspect]
     Active Substance: OMEPRAZOLE
     Indication: Gout
  5. OMEPRAZOLE [Suspect]
     Active Substance: OMEPRAZOLE
     Indication: Gastrooesophageal reflux disease
  6. HYDROCHLOROTHIAZIDE\LISINOPRIL [Concomitant]
     Active Substance: HYDROCHLOROTHIAZIDE\LISINOPRIL
     Indication: Hypertension
     Dosage: ^0.25^ (DOSE NOT CLARIFIED) MILLIGRAMS
     Dates: start: 2014
  7. ALLOPURINOL [Concomitant]
     Active Substance: ALLOPURINOL
     Indication: Gout
     Dosage: 100 MG
     Dates: start: 2019
  8. AMLODIPINE [Concomitant]
     Active Substance: AMLODIPINE BESYLATE
     Indication: Hypertension
     Dosage: 10 MG
     Dates: start: 2014
  9. ATORVASTATIN [Concomitant]
     Active Substance: ATORVASTATIN
     Indication: Blood cholesterol abnormal
     Dosage: 40 MG
     Dates: start: 2014
  10. PEPCID [Concomitant]
     Active Substance: FAMOTIDINE
     Dosage: UNK
     Dates: start: 202211
  11. FAMOTIDINE [Concomitant]
     Active Substance: FAMOTIDINE
     Indication: Antacid therapy
     Dosage: 20 MG
     Dates: start: 20221105

REACTIONS (15)
  - Diverticulitis [Recovered/Resolved]
  - Clostridium difficile infection [Recovered/Resolved]
  - Haemorrhage [Recovered/Resolved]
  - Haemorrhoids [Not Recovered/Not Resolved]
  - Abdominal pain upper [Not Recovered/Not Resolved]
  - Pain [Not Recovered/Not Resolved]
  - Haemorrhoids [Not Recovered/Not Resolved]
  - Impaired work ability [Not Recovered/Not Resolved]
  - Gastrointestinal disorder [Not Recovered/Not Resolved]
  - Vital functions abnormal [Recovered/Resolved]
  - Pyrexia [Recovered/Resolved]
  - Weight decreased [Not Recovered/Not Resolved]
  - Abdominal pain [Unknown]
  - Respiratory tract congestion [Recovered/Resolved]
  - Cough [Recovered/Resolved]

NARRATIVE: CASE EVENT DATE: 20220926
